FAERS Safety Report 15208011 (Version 1)
Quarter: 2018Q3

REPORT INFORMATION
  Report Type: Spontaneous
  Country: GB (occurrence: GB)
  Receive Date: 20180727
  Receipt Date: 20180727
  Transmission Date: 20181010
  Serious: Yes (Disabling)
  Sender: FDA-Public Use
  Company Number: GB-TEVA-2018-GB-931589

PATIENT
  Age: 11 Year
  Sex: Male

DRUGS (2)
  1. SODIUM VALPROATE [Suspect]
     Active Substance: VALPROATE SODIUM
     Dosage: 400MG MANE AND 500MG NOCTE (23MG/KG/DAY). BEING REDUCED BY 200MG/WEEK
     Route: 048
     Dates: start: 20170404
  2. SODIUM VALPROATE [Suspect]
     Active Substance: VALPROATE SODIUM
     Route: 048
     Dates: start: 20160315, end: 20170403

REACTIONS (2)
  - Febrile neutropenia [Not Recovered/Not Resolved]
  - Bicytopenia [Not Recovered/Not Resolved]

NARRATIVE: CASE EVENT DATE: 20180623
